FAERS Safety Report 14993983 (Version 10)
Quarter: 2018Q3

REPORT INFORMATION
  Report Type: Report from Study
  Country: FR (occurrence: FR)
  Receive Date: 20180611
  Receipt Date: 20180903
  Transmission Date: 20181010
  Serious: Yes (Death, Hospitalization)
  Sender: FDA-Public Use
  Company Number: FR-ACTELION-A-CH2018-173332

PATIENT
  Age: 55 Year
  Sex: Male
  Weight: 86 kg

DRUGS (4)
  1. UPTRAVI [Suspect]
     Active Substance: SELEXIPAG
     Indication: PULMONARY ARTERIAL HYPERTENSION
     Dosage: 200 ?G, BID
     Route: 048
     Dates: start: 20180528
  2. UPTRAVI [Suspect]
     Active Substance: SELEXIPAG
     Dosage: 400 ?G, BID
     Route: 048
     Dates: start: 20180604, end: 20180731
  3. AMBRISENTAN [Concomitant]
     Active Substance: AMBRISENTAN
  4. TADALAFIL [Concomitant]
     Active Substance: TADALAFIL

REACTIONS (19)
  - Fatigue [Not Recovered/Not Resolved]
  - Myalgia [Not Recovered/Not Resolved]
  - Rash [Not Recovered/Not Resolved]
  - Weight decreased [Unknown]
  - Dysarthria [Recovered/Resolved]
  - Dyspnoea exertional [Not Recovered/Not Resolved]
  - Speech disorder [Unknown]
  - Feeling abnormal [Unknown]
  - Sleep disorder [Not Recovered/Not Resolved]
  - Decreased appetite [Recovered/Resolved]
  - Pericardial effusion [Not Recovered/Not Resolved]
  - Staphylococcal infection [Unknown]
  - Insomnia [Unknown]
  - Cardiac arrest [Fatal]
  - Burning sensation [Unknown]
  - Pruritus [Unknown]
  - Pain in jaw [Not Recovered/Not Resolved]
  - Cardiac disorder [Unknown]
  - Dyspnoea [Not Recovered/Not Resolved]

NARRATIVE: CASE EVENT DATE: 20180528
